FAERS Safety Report 5530677-9 (Version None)
Quarter: 2007Q4

REPORT INFORMATION
  Report Type: 
  Country: None (occurrence: None)
  Receive Date: 20071130
  Receipt Date: 20071127
  Transmission Date: 20080405
  Serious: Yes (Hospitalization, Other)
  Sender: FDA-Public Use
  Company Number: FR-ASTRAZENECA-2007CG01145

PATIENT
  Age: 22863 Day
  Sex: Female
  Weight: 47 kg

DRUGS (5)
  1. MOPRAL [Suspect]
     Indication: GASTROOESOPHAGEAL REFLUX DISEASE
     Route: 048
     Dates: start: 19950901, end: 19990316
  2. PREDNISONE TAB [Concomitant]
     Indication: POLYARTHRITIS
  3. DIFFU K [Concomitant]
  4. LODALES [Concomitant]
     Indication: HYPERCHOLESTEROLAEMIA
  5. DI-ANTALVIC [Concomitant]
     Indication: POLYARTHRITIS

REACTIONS (2)
  - MOUTH HAEMORRHAGE [None]
  - THROMBOCYTOPENIC PURPURA [None]
